FAERS Safety Report 18129982 (Version 2)
Quarter: 2022Q1

REPORT INFORMATION
  Report Type: Spontaneous
  Country: US (occurrence: US)
  Receive Date: 20200810
  Receipt Date: 20220324
  Transmission Date: 20220423
  Serious: No
  Sender: FDA-Public Use
  Company Number: US-NOVARTISTESTPH-NVSC2020US216439

PATIENT
  Sex: Female

DRUGS (4)
  1. VIVELLE-DOT [Suspect]
     Active Substance: ESTRADIOL
     Indication: Product used for unknown indication
     Dosage: UNK
     Route: 065
  2. ESTRADIOL [Suspect]
     Active Substance: ESTRADIOL
     Indication: Product used for unknown indication
     Dosage: UNK
     Route: 065
  3. MINIVELLE [Concomitant]
     Active Substance: ESTRADIOL
     Indication: Menopausal symptoms
     Dosage: 1 DF, BIW
     Route: 065
     Dates: end: 202005
  4. MINIVELLE [Concomitant]
     Active Substance: ESTRADIOL
     Dosage: 1 DF, BIW, 1 TRANSDERMAL PATCH, CHANGED 2X/WEEK
     Route: 065
     Dates: start: 202007

REACTIONS (2)
  - Depression [Unknown]
  - Insomnia [Unknown]
